FAERS Safety Report 8245652-3 (Version None)
Quarter: 2012Q1

REPORT INFORMATION
  Report Type: 
  Country: None (occurrence: None)
  Receive Date: 20120330
  Receipt Date: 20120320
  Transmission Date: 20120608
  Serious: No
  Sender: FDA-Public Use
  Company Number: US-BIOGENIDEC-2011BI004023

PATIENT
  Age: 42 Year
  Sex: Female

DRUGS (2)
  1. TYSABRI [Suspect]
     Indication: MULTIPLE SCLEROSIS
     Route: 042
     Dates: start: 20090526, end: 20100922
  2. TYSABRI [Suspect]
     Route: 042
     Dates: start: 20110701

REACTIONS (16)
  - ABDOMINAL PAIN UPPER [None]
  - MEMORY IMPAIRMENT [None]
  - NAUSEA [None]
  - URINARY TRACT INFECTION [None]
  - BENIGN BREAST NEOPLASM [None]
  - POOR VENOUS ACCESS [None]
  - MULTIPLE SCLEROSIS [None]
  - HEPATOMEGALY [None]
  - ABDOMINAL PAIN [None]
  - URINARY INCONTINENCE [None]
  - CONTUSION [None]
  - MUSCULAR WEAKNESS [None]
  - COLONIC POLYP [None]
  - GAIT DISTURBANCE [None]
  - HYPOAESTHESIA [None]
  - GASTROOESOPHAGEAL REFLUX DISEASE [None]
